FAERS Safety Report 7284165-2 (Version None)
Quarter: 2011Q1

REPORT INFORMATION
  Report Type: 
  Country: None (occurrence: None)
  Receive Date: 20110209
  Receipt Date: 20110201
  Transmission Date: 20110831
  Serious: Yes (Hospitalization)
  Sender: FDA-Public Use
  Company Number: CH-US-EMD SERONO, INC.-7039289

PATIENT
  Sex: Male

DRUGS (8)
  1. REBIF [Suspect]
     Route: 058
     Dates: start: 20100101, end: 20100101
  2. REBIF [Suspect]
     Indication: MULTIPLE SCLEROSIS
     Route: 058
     Dates: start: 20071106, end: 20090701
  3. REBIF [Suspect]
     Route: 058
     Dates: start: 20090701, end: 20100701
  4. REBIF [Suspect]
     Route: 058
     Dates: start: 20100101, end: 20100801
  5. BD DRUGS [Concomitant]
     Indication: HYPERTENSION
     Route: 048
  6. REBIF [Suspect]
     Dosage: TITRATION
     Route: 058
     Dates: start: 20100901, end: 20101101
  7. BD DRUGS [Concomitant]
     Indication: RENAL FAILURE
  8. REBIF [Suspect]
     Dosage: TITRATION
     Route: 058
     Dates: start: 20101101, end: 20101130

REACTIONS (6)
  - TREATMENT NONCOMPLIANCE [None]
  - RESPIRATORY DISORDER [None]
  - DISBACTERIOSIS [None]
  - MULTIPLE SCLEROSIS RELAPSE [None]
  - DIVERTICULITIS [None]
  - SINUSITIS [None]
